FAERS Safety Report 5852528-5 (Version None)
Quarter: 2008Q3

REPORT INFORMATION
  Report Type: 
  Country: None (occurrence: None)
  Receive Date: 20080819
  Receipt Date: 20080807
  Transmission Date: 20090109
  Serious: Yes (Hospitalization, Other)
  Sender: FDA-Public Use
  Company Number: 15419

PATIENT
  Age: 73 Year
  Sex: Female
  Weight: 58.514 kg

DRUGS (13)
  1. MORPHINE SULFATE [Suspect]
     Indication: BACK PAIN
     Dosage: 60 MG QD ORALLY
     Route: 048
     Dates: start: 20080619, end: 20080620
  2. ZOLOFT [Concomitant]
  3. DIAZEPAM [Concomitant]
  4. LORTAB [Concomitant]
  5. PROZAC [Concomitant]
  6. PREDNISONE TAB [Concomitant]
  7. COMBIVENT [Concomitant]
  8. SPIRIVA [Concomitant]
  9. COUMADIN [Concomitant]
  10. AVAPRO [Concomitant]
  11. VYTORIN [Concomitant]
  12. PRILOSEC [Concomitant]
  13. TYLENOL (CAPLET) [Concomitant]

REACTIONS (4)
  - DIZZINESS [None]
  - FALL [None]
  - HIP FRACTURE [None]
  - PHARMACEUTICAL PRODUCT COMPLAINT [None]
